FAERS Safety Report 16812229 (Version 1)
Quarter: 2019Q3

REPORT INFORMATION
  Report Type: Spontaneous
  Country: GR (occurrence: GR)
  Receive Date: 20190916
  Receipt Date: 20190916
  Transmission Date: 20191005
  Serious: Yes (Other)
  Sender: FDA-Public Use
  Company Number: GR-MYLANLABS-2019M1086606

PATIENT
  Age: 20 Year
  Sex: Male

DRUGS (7)
  1. LORAZEPAM. [Suspect]
     Active Substance: LORAZEPAM
     Indication: PRODUCT USED FOR UNKNOWN INDICATION
     Dosage: 2.5 MILLIGRAM
     Route: 065
     Dates: start: 200901
  2. PALIPERIDONE. [Suspect]
     Active Substance: PALIPERIDONE
     Indication: PRODUCT USED FOR UNKNOWN INDICATION
     Dosage: OROS (ORAL OSMOTIC) THERAPEUTIC SYSTEM TABLET
     Route: 048
     Dates: start: 200901
  3. PALIPERIDONE. [Suspect]
     Active Substance: PALIPERIDONE
     Dosage: OROS (ORAL OSMOTIC) THERAPEUTIC SYSTEM TABLET
     Route: 048
     Dates: start: 201206
  4. BIPERIDEN [Suspect]
     Active Substance: BIPERIDEN
     Indication: MAJOR DEPRESSION
     Dosage: 4 MILLIGRAM, QD
     Route: 065
     Dates: start: 200904, end: 200910
  5. BIPERIDEN [Suspect]
     Active Substance: BIPERIDEN
     Dosage: 8 MILLIGRAM, QD
     Route: 065
     Dates: start: 201208
  6. PALIPERIDONE. [Suspect]
     Active Substance: PALIPERIDONE
     Dosage: OROS (ORAL OSMOTIC) THERAPEUTIC SYSTEM TABLET
     Route: 048
     Dates: start: 201208
  7. VENLAFAXINE [Suspect]
     Active Substance: VENLAFAXINE HYDROCHLORIDE
     Indication: PRODUCT USED FOR UNKNOWN INDICATION
     Dosage: 150 MILLIGRAM
     Route: 065
     Dates: start: 200904, end: 200910

REACTIONS (3)
  - Acute psychosis [Unknown]
  - Condition aggravated [Unknown]
  - Conduction disorder [Unknown]

NARRATIVE: CASE EVENT DATE: 201110
